FAERS Safety Report 23579359 (Version 1)
Quarter: 2024Q1

REPORT INFORMATION
  Report Type: Spontaneous
  Country: FR (occurrence: FR)
  Receive Date: 20240229
  Receipt Date: 20240229
  Transmission Date: 20240410
  Serious: Yes (Hospitalization, Other)
  Sender: FDA-Public Use
  Company Number: FR-Axellia-005077

PATIENT
  Age: 30 Year
  Sex: Female

DRUGS (8)
  1. VORICONAZOLE [Suspect]
     Active Substance: VORICONAZOLE
     Indication: Pneumonia fungal
  2. AMPHOTERICIN B [Concomitant]
     Active Substance: AMPHOTERICIN B
     Indication: Pneumonia fungal
  3. CLOFARABINE [Concomitant]
     Active Substance: CLOFARABINE
     Indication: Leukaemia recurrent
  4. ETOPOSIDE [Concomitant]
     Active Substance: ETOPOSIDE
     Indication: Leukaemia recurrent
  5. MELPHALAN [Concomitant]
     Active Substance: MELPHALAN
     Indication: Leukaemia recurrent
  6. CYCLOSPORINE [Concomitant]
     Active Substance: CYCLOSPORINE
  7. MYCOPHENOLIC ACID [Concomitant]
     Active Substance: MYCOPHENOLIC ACID
  8. VORICONAZOLE [Suspect]
     Active Substance: VORICONAZOLE
     Indication: Pneumonia fungal
     Route: 048

REACTIONS (1)
  - Posterior reversible encephalopathy syndrome [Unknown]
